FAERS Safety Report 6656909-1 (Version None)
Quarter: 2010Q1

REPORT INFORMATION
  Report Type: 
  Country: None (occurrence: None)
  Receive Date: 20100329
  Receipt Date: 20100329
  Transmission Date: 20100710
  Serious: Yes (Death)
  Sender: FDA-Public Use
  Company Number: None

PATIENT
  Sex: Male
  Weight: 78 kg

DRUGS (8)
  1. CYTARABINE [Suspect]
     Dosage: 1800MG
     Dates: end: 20091228
  2. ETOPOSIDE [Suspect]
     Dosage: 90 MG
     Dates: end: 20091228
  3. MITOXANTRONE HYDROCHLORIDE [Suspect]
     Dosage: 14 MG
     Dates: end: 20091228
  4. RAPAMUNE [Suspect]
     Dosage: 44 MG
     Dates: end: 20091228
  5. COMBIVENT [Concomitant]
  6. EFFEXOR [Concomitant]
  7. OXYCODONE [Concomitant]
  8. SYMBICORT [Concomitant]

REACTIONS (1)
  - DISEASE PROGRESSION [None]
